FAERS Safety Report 7290219-7 (Version None)
Quarter: 2011Q1

REPORT INFORMATION
  Report Type: 
  Country: None (occurrence: None)
  Receive Date: 20110214
  Receipt Date: 20110209
  Transmission Date: 20110831
  Serious: Yes (Death, Hospitalization, Other)
  Sender: FDA-Public Use
  Company Number: PHHY2011BR10596

PATIENT
  Sex: Female

DRUGS (2)
  1. OMEPRAZOLE [Concomitant]
     Indication: ABDOMINAL HERNIA
     Dosage: 1 DF, QD
  2. DIOVAN [Suspect]
     Indication: HYPERTENSION
     Dosage: 1 DF, QD
     Route: 048
     Dates: start: 20090401

REACTIONS (4)
  - PNEUMONIA [None]
  - THROMBOSIS [None]
  - DEMENTIA ALZHEIMER'S TYPE [None]
  - VOMITING [None]
